FAERS Safety Report 7149432-1 (Version None)
Quarter: 2010Q4

REPORT INFORMATION
  Report Type: 
  Country: None (occurrence: None)
  Receive Date: 20101209
  Receipt Date: 20100816
  Transmission Date: 20110411
  Serious: No
  Sender: FDA-Public Use
  Company Number: US-KINGPHARMUSA00001-K201001118

PATIENT

DRUGS (1)
  1. EMBEDA [Suspect]
     Dosage: UNK, BID

REACTIONS (1)
  - DRUG INEFFECTIVE [None]
